FAERS Safety Report 14582814 (Version 2)
Quarter: 2018Q2

REPORT INFORMATION
  Report Type: Other
  Country: NL (occurrence: NL)
  Receive Date: 20180228
  Receipt Date: 20180405
  Transmission Date: 20180711
  Serious: Yes (Other)
  Sender: FDA-Public Use
  Company Number: NL-GLENMARK PHARMACEUTICALS-2017GMK032669

PATIENT

DRUGS (3)
  1. ITRACONAZOLE. [Interacting]
     Active Substance: ITRACONAZOLE
     Indication: PRODUCT USED FOR UNKNOWN INDICATION
     Dosage: UNK
     Route: 065
  2. VORICONAZOLE. [Suspect]
     Active Substance: VORICONAZOLE
     Indication: ASPERGILLUS INFECTION
     Dosage: LOADING DOSE OF 9 MG/KG THRICE A DAY
     Route: 042
  3. VORICONAZOLE. [Interacting]
     Active Substance: VORICONAZOLE
     Dosage: MAINTENANCE DOSE OF 8 MG/KG, THRICE A DAY
     Route: 042

REACTIONS (3)
  - Drug interaction [Unknown]
  - Cardiovascular insufficiency [Unknown]
  - Hepatotoxicity [Unknown]
